FAERS Safety Report 5946173-0 (Version None)
Quarter: 2008Q4

REPORT INFORMATION
  Report Type: 
  Country: None (occurrence: None)
  Receive Date: 20081106
  Receipt Date: 20081106
  Transmission Date: 20090506
  Serious: Yes (Other)
  Sender: FDA-Public Use
  Company Number: None

PATIENT
  Sex: Female

DRUGS (1)
  1. CLONAZEPAM [Suspect]
     Dates: start: 20081019, end: 20081104

REACTIONS (7)
  - ANXIETY [None]
  - HEADACHE [None]
  - ILL-DEFINED DISORDER [None]
  - IRRITABILITY [None]
  - PANIC REACTION [None]
  - RESTLESSNESS [None]
  - TOBACCO USER [None]
